FAERS Safety Report 7503549-8 (Version None)
Quarter: 2011Q2

REPORT INFORMATION
  Report Type: 
  Country: None (occurrence: None)
  Receive Date: 20110525
  Receipt Date: 20110517
  Transmission Date: 20111010
  Serious: Yes (Hospitalization)
  Sender: FDA-Public Use
  Company Number: US-ROCHE-778527

PATIENT
  Age: 70 Year
  Sex: Male

DRUGS (9)
  1. ACETAMINOPHEN [Concomitant]
  2. CEFTRIAXONE SODIUM [Suspect]
     Route: 042
  3. CETUXIMAB [Suspect]
     Route: 065
     Dates: start: 20110322, end: 20110411
  4. IRINOTECAN HYDROCHLORIDE [Suspect]
     Route: 065
     Dates: start: 20110322, end: 20110411
  5. DOXYCYCLINE [Concomitant]
     Route: 048
  6. FLECTOR [Concomitant]
     Route: 061
  7. LOPERAMIDE [Concomitant]
     Route: 048
  8. OXYCODONE HCL [Concomitant]
     Route: 048
  9. MOTRIN [Concomitant]
     Dosage: EVERY 4-6 HOURS
     Route: 048

REACTIONS (2)
  - STREPTOCOCCAL SEPSIS [None]
  - HYPERSENSITIVITY [None]
